FAERS Safety Report 21841276 (Version 1)
Quarter: 2023Q1

REPORT INFORMATION
  Report Type: Report from Study
  Country: US (occurrence: US)
  Receive Date: 20230110
  Receipt Date: 20230110
  Transmission Date: 20230418
  Serious: No
  Sender: FDA-Public Use
  Company Number: US-ABBVIE-4260116

PATIENT
  Age: 33 Year
  Sex: Female

DRUGS (2)
  1. HUMIRA [Suspect]
     Active Substance: ADALIMUMAB
     Indication: Uveitis
     Route: 058
     Dates: start: 20221216
  2. HUMIRA [Suspect]
     Active Substance: ADALIMUMAB
     Indication: Product used for unknown indication
     Dosage: STOP DATE: DEC 2022
     Route: 058
     Dates: start: 20221201

REACTIONS (5)
  - Throat irritation [Recovering/Resolving]
  - Respiratory tract congestion [Recovering/Resolving]
  - Nasopharyngitis [Recovering/Resolving]
  - Oropharyngeal pain [Recovering/Resolving]
  - Malaise [Recovering/Resolving]

NARRATIVE: CASE EVENT DATE: 20230101
